FAERS Safety Report 8404126-7 (Version None)
Quarter: 2012Q2

REPORT INFORMATION
  Report Type: 
  Country: None (occurrence: None)
  Receive Date: 20120601
  Receipt Date: 20120531
  Transmission Date: 20120825
  Serious: Yes (Death, Life-Threatening, Hospitalization)
  Sender: FDA-Public Use
  Company Number: JP-B.I. PHARMACEUTICALS,INC./RIDGEFIELD-2012-BP-09202NB

PATIENT
  Sex: Male
  Weight: 52.4 kg

DRUGS (24)
  1. ZOLPIDEM [Concomitant]
     Indication: INSOMNIA
     Route: 048
     Dates: end: 20120421
  2. SULPIRIDE [Concomitant]
     Indication: HYPOCHONDRIASIS
     Dosage: 150 MG
     Route: 048
     Dates: start: 20110909, end: 20120422
  3. FRANDOL S [Concomitant]
     Dosage: 40 MG
     Route: 065
     Dates: end: 20120422
  4. DEPAS [Concomitant]
     Indication: ANXIETY
     Dosage: 0.5 MG
     Route: 048
     Dates: end: 20110913
  5. GASCON [Concomitant]
     Indication: NAUSEA
     Dosage: 80 MG
     Route: 048
     Dates: start: 20110907, end: 20110909
  6. DAIKENCHUTO [Concomitant]
     Dosage: 7.5 G
     Route: 065
     Dates: end: 20120229
  7. MAGNESIUM OXIDE [Concomitant]
     Route: 048
     Dates: end: 20120328
  8. MUCODYNE [Concomitant]
     Indication: PRODUCTIVE COUGH
     Dosage: 1500 MG
     Route: 048
     Dates: start: 20111202, end: 20120422
  9. CLEANAL [Concomitant]
     Indication: PRODUCTIVE COUGH
     Dosage: 1200 MG
     Route: 048
     Dates: start: 20120216, end: 20120229
  10. SALUMOSIN [Concomitant]
     Route: 065
     Dates: end: 20120229
  11. COLDRIN [Concomitant]
     Indication: COUGH
     Dosage: 75 MG
     Route: 048
     Dates: start: 20120305, end: 20120311
  12. MICARDIS [Concomitant]
     Indication: HYPERTENSION
     Dosage: 20 MG
     Route: 048
     Dates: end: 20120401
  13. PURSENNID [Concomitant]
     Indication: CONSTIPATION
     Dosage: 24 MG
     Route: 048
  14. ALLOPURINOL [Concomitant]
     Route: 065
     Dates: end: 20120229
  15. PRADAXA [Suspect]
     Indication: ATRIAL FIBRILLATION
     Dosage: 220 MG
     Route: 048
     Dates: start: 20110722, end: 20120411
  16. CIBENOL [Concomitant]
     Indication: ATRIAL FIBRILLATION
     Dosage: 200 MG
     Route: 048
     Dates: start: 20101021, end: 20120411
  17. SEISHOKU [Concomitant]
     Indication: COUGH
     Dosage: 182 ML
     Route: 055
     Dates: start: 20120310, end: 20120422
  18. VENTOLIN [Concomitant]
     Indication: COUGH
     Dosage: 14 ML
     Route: 055
     Dates: start: 20120310, end: 20120422
  19. BISOLVON [Concomitant]
     Indication: COUGH
     Dosage: 28 ML
     Route: 055
     Dates: start: 20120310, end: 20120422
  20. TRICHLORMETHIAZIDE [Concomitant]
     Indication: HYPERTENSION
     Dosage: 1 MG
     Route: 048
     Dates: start: 20111014, end: 20120328
  21. BROCIN [Concomitant]
     Indication: COUGH
     Dosage: 6 ML
     Route: 048
     Dates: start: 20120311, end: 20120422
  22. WARFARIN SODIUM [Concomitant]
     Dosage: 3 MG
     Route: 048
     Dates: start: 20110610, end: 20110722
  23. RHYTHMY [Concomitant]
     Indication: INSOMNIA
     Dosage: 1 MG
     Route: 048
     Dates: start: 20110219, end: 20120322
  24. LANDEL [Concomitant]
     Route: 065
     Dates: end: 20120229

REACTIONS (2)
  - INTERSTITIAL LUNG DISEASE [None]
  - HYPONATRAEMIA [None]
